FAERS Safety Report 14962991 (Version 1)
Quarter: 2018Q2

REPORT INFORMATION
  Report Type: Spontaneous
  Country: US (occurrence: US)
  Receive Date: 20180510
  Receipt Date: 20180510
  Transmission Date: 20180711
  Serious: Yes (Hospitalization)
  Sender: FDA-Public Use
  Company Number: None

PATIENT
  Age: 52 Year
  Sex: Male
  Weight: 78.4 kg

DRUGS (15)
  1. GEMCITABINE [Suspect]
     Active Substance: GEMCITABINE\GEMCITABINE HYDROCHLORIDE
     Dosage: OTHER FREQUENCY:DAY 1 + 8;?
     Route: 042
     Dates: start: 20180410, end: 20180417
  2. PERCOCET [Concomitant]
     Active Substance: ACETAMINOPHEN\OXYCODONE HYDROCHLORIDE
  3. MESALAMINE. [Concomitant]
     Active Substance: MESALAMINE
  4. MULTIVITAMINS [Concomitant]
     Active Substance: VITAMINS
  5. MIRALAX [Concomitant]
     Active Substance: POLYETHYLENE GLYCOL 3350
  6. MIRTAZAPINE. [Concomitant]
     Active Substance: MIRTAZAPINE
  7. OLANZAPINE. [Concomitant]
     Active Substance: OLANZAPINE
  8. LEE011, RIBOCICLIB [Suspect]
     Active Substance: RIBOCICLIB
     Dosage: ?          OTHER FREQUENCY:DAY 8-14;?
     Route: 048
     Dates: start: 20180417, end: 20180423
  9. VITAMIN D3 [Concomitant]
     Active Substance: CHOLECALCIFEROL
  10. OMEPRAZOLE. [Concomitant]
     Active Substance: OMEPRAZOLE
  11. COMPAZINE [Concomitant]
     Active Substance: PROCHLORPERAZINE MALEATE
  12. LIDODERM [Concomitant]
     Active Substance: LIDOCAINE
  13. METOPROLOL. [Concomitant]
     Active Substance: METOPROLOL
  14. ONDANSETRON [Concomitant]
     Active Substance: ONDANSETRON
  15. SENNA [Concomitant]
     Active Substance: SENNA LEAF\SENNOSIDES\SENNOSIDES A AND B

REACTIONS (2)
  - Sepsis [None]
  - Pneumonia [None]

NARRATIVE: CASE EVENT DATE: 20180501
